FAERS Safety Report 7088130-X (Version None)
Quarter: 2010Q4

REPORT INFORMATION
  Report Type: 
  Country: None (occurrence: None)
  Receive Date: 20101028
  Receipt Date: 20101015
  Transmission Date: 20110411
  Serious: Yes (Other)
  Sender: FDA-Public Use
  Company Number: US-000135

PATIENT
  Age: 70 Year
  Sex: Female

DRUGS (20)
  1. TRAZODONE 150 MG [Suspect]
     Indication: ANXIETY
     Dosage: 150 MG QD ORAL
     Route: 048
     Dates: start: 20100924, end: 20100928
  2. TRAZODONE 150 MG [Suspect]
     Indication: INSOMNIA
     Dosage: 150 MG QD ORAL
     Route: 048
     Dates: start: 20100924, end: 20100928
  3. PLAVIX [Concomitant]
  4. OMEPRAZOLE [Concomitant]
  5. RELAFEN [Concomitant]
  6. LISINOPRIL [Concomitant]
  7. OXCARBAZEPINE [Concomitant]
  8. HYDROCHLOROTHIAZIDE [Concomitant]
  9. ASPIRIN [Concomitant]
  10. GEMFIBROZIL [Concomitant]
  11. LASIX [Concomitant]
  12. LANTUS [Concomitant]
  13. TOPAMAX [Concomitant]
  14. BUSPAR [Concomitant]
  15. LEXAPRO [Concomitant]
  16. REMERON [Concomitant]
  17. RESTORIL [Concomitant]
  18. ALPRAZOLAM [Concomitant]
  19. ISORBIDE [Concomitant]
  20. KLOR-CON [Concomitant]

REACTIONS (12)
  - ABDOMINAL PAIN [None]
  - ABDOMINAL PAIN LOWER [None]
  - ATRIOVENTRICULAR BLOCK FIRST DEGREE [None]
  - BACK PAIN [None]
  - DYSPNOEA [None]
  - DYSURIA [None]
  - MENTAL STATUS CHANGES [None]
  - NEUROLOGICAL SYMPTOM [None]
  - PSYCHOTIC DISORDER [None]
  - REPETITIVE SPEECH [None]
  - SEDATION [None]
  - URINARY TRACT DISORDER [None]
